FAERS Safety Report 14709114 (Version 1)
Quarter: 2018Q2

REPORT INFORMATION
  Report Type: Spontaneous
  Country: ES (occurrence: ES)
  Receive Date: 20180403
  Receipt Date: 20180403
  Transmission Date: 20180711
  Serious: Yes (Hospitalization)
  Sender: FDA-Public Use
  Company Number: ES-SA-2018SA086033

PATIENT
  Age: 94 Year
  Sex: Female
  Weight: 75 kg

DRUGS (7)
  1. FUROSEMIDA [Concomitant]
     Active Substance: FUROSEMIDE
     Route: 048
  2. AMLODIPINE [Concomitant]
     Active Substance: AMLODIPINE BESYLATE
     Route: 048
  3. ESPIRONOLACTONA [Concomitant]
     Active Substance: SPIRONOLACTONE
     Route: 048
  4. RIFINAH [Suspect]
     Active Substance: ISONIAZID\RIFAMPIN
     Indication: TUBERCULOSIS
     Route: 048
     Dates: start: 20180129, end: 20180212
  5. ACTIRA [Concomitant]
     Active Substance: MOXIFLOXACIN HYDROCHLORIDE
     Route: 048
     Dates: start: 20180129
  6. BETAHISTINE [Concomitant]
     Active Substance: BETAHISTINE
     Route: 048
  7. STUGERON [Concomitant]
     Active Substance: CINNARIZINE
     Route: 048

REACTIONS (2)
  - Thrombocytopenia [Recovered/Resolved]
  - Gastrointestinal haemorrhage [Recovered/Resolved]

NARRATIVE: CASE EVENT DATE: 20180212
